FAERS Safety Report 6926383-6 (Version None)
Quarter: 2010Q3

REPORT INFORMATION
  Report Type: 
  Country: None (occurrence: None)
  Receive Date: 20100816
  Receipt Date: 20100720
  Transmission Date: 20110219
  Serious: Yes (Disabling, Other)
  Sender: FDA-Public Use
  Company Number: PHEH2007US02869

PATIENT
  Sex: Male
  Weight: 87.982 kg

DRUGS (11)
  1. ZOMETA [Suspect]
     Indication: MULTIPLE MYELOMA
     Dosage: 4 MG IV MONTHLY
     Dates: start: 20020801, end: 20040722
  2. AREDIA [Suspect]
  3. HYTRIN [Concomitant]
     Indication: PROSTATITIS
  4. PROSCAR [Concomitant]
     Indication: PROSTATITIS
  5. ADRENERGIC DRUGS [Concomitant]
  6. LIPITOR [Concomitant]
  7. ZOCOR [Concomitant]
  8. VITAMINS [Concomitant]
  9. SAW PALMETTO [Concomitant]
  10. ASPIRIN [Concomitant]
  11. VITAMIN E [Concomitant]

REACTIONS (45)
  - ABDOMINAL HERNIA [None]
  - ANXIETY [None]
  - AORTIC VALVE INCOMPETENCE [None]
  - BETA 2 MICROGLOBULIN INCREASED [None]
  - BIFASCICULAR BLOCK [None]
  - BLOOD CREATINE PHOSPHOKINASE INCREASED [None]
  - BONE DENSITY DECREASED [None]
  - BONE DISORDER [None]
  - BONE EROSION [None]
  - BONE SCAN ABNORMAL [None]
  - BRONCHOPNEUMONIA [None]
  - BUNDLE BRANCH BLOCK RIGHT [None]
  - CARDIAC ANEURYSM [None]
  - CARDIAC VALVE DISEASE [None]
  - CHEST PAIN [None]
  - COLONIC POLYP [None]
  - DECREASED INTEREST [None]
  - FISTULA [None]
  - GENERAL PHYSICAL HEALTH DETERIORATION [None]
  - GINGIVAL EROSION [None]
  - INTERVERTEBRAL DISC PROTRUSION [None]
  - JAW OPERATION [None]
  - MACULOPATHY [None]
  - MICROGRAPHIC SKIN SURGERY [None]
  - MITRAL VALVE INCOMPETENCE [None]
  - MULTIPLE MYELOMA [None]
  - MYOSITIS [None]
  - OPTIC NERVE CUPPING [None]
  - ORAL TORUS [None]
  - OSTEONECROSIS OF JAW [None]
  - OSTEOPENIA [None]
  - PAIN [None]
  - PAROXYSMAL NOCTURNAL HAEMOGLOBINURIA [None]
  - PERIPHERAL VASCULAR DISORDER [None]
  - PLASMA CELLS INCREASED [None]
  - PROSTATIC OBSTRUCTION [None]
  - PROSTATIC SPECIFIC ANTIGEN INCREASED [None]
  - PROSTATITIS [None]
  - PROSTATOMEGALY [None]
  - SKIN CANCER [None]
  - SKIN LESION [None]
  - SQUAMOUS CELL CARCINOMA [None]
  - SYNCOPE [None]
  - TOOTH EXTRACTION [None]
  - VISION BLURRED [None]
